FAERS Safety Report 21403998 (Version 2)
Quarter: 2022Q4

REPORT INFORMATION
  Report Type: Spontaneous
  Country: MX (occurrence: None)
  Receive Date: 20221003
  Receipt Date: 20221123
  Transmission Date: 20230112
  Serious: Yes (Hospitalization, Other)
  Sender: FDA-Public Use
  Company Number: 2022A335557

PATIENT
  Age: 66 Year
  Sex: Female
  Weight: 74 kg

DRUGS (4)
  1. SYMBICORT [Suspect]
     Active Substance: BUDESONIDE\FORMOTEROL FUMARATE DIHYDRATE
     Indication: Asthma
     Route: 055
     Dates: start: 2010
  2. ATACAND [Suspect]
     Active Substance: CANDESARTAN CILEXETIL
     Indication: Hypertension
     Route: 048
  3. BISOPROLOL [Concomitant]
     Active Substance: BISOPROLOL
  4. METFORMIN [Concomitant]
     Active Substance: METFORMIN HYDROCHLORIDE

REACTIONS (7)
  - Oesophageal achalasia [Not Recovered/Not Resolved]
  - Oesophageal perforation [Unknown]
  - Gastric perforation [Unknown]
  - Lung perforation [Unknown]
  - COVID-19 [Recovered/Resolved]
  - Product dose omission issue [Unknown]
  - Device failure [Unknown]

NARRATIVE: CASE EVENT DATE: 20190101
